FAERS Safety Report 8622830-2 (Version None)
Quarter: 2012Q3

REPORT INFORMATION
  Report Type: 
  Country: None (occurrence: None)
  Receive Date: 20120827
  Receipt Date: 20120813
  Transmission Date: 20120928
  Serious: Yes (Other)
  Sender: FDA-Public Use
  Company Number: PHHY2012CA059713

PATIENT
  Sex: Male

DRUGS (2)
  1. EXELON [Suspect]
     Indication: DEMENTIA ALZHEIMER'S TYPE
     Dosage: 9.5 MG/24 HOURS
     Route: 062
     Dates: start: 20120524
  2. EXELON [Suspect]
     Route: 062

REACTIONS (3)
  - CELLULITIS [None]
  - ANIMAL BITE [None]
  - SKIN EXFOLIATION [None]
